FAERS Safety Report 18456975 (Version 1)
Quarter: 2020Q4

REPORT INFORMATION
  Report Type: Spontaneous
  Country: US (occurrence: US)
  Receive Date: 20201102
  Receipt Date: 20201102
  Transmission Date: 20210114
  Serious: Yes (Other)
  Sender: FDA-Public Use
  Company Number: None

PATIENT
  Age: 83 Year
  Sex: Male
  Weight: 80.56 kg

DRUGS (11)
  1. DOCUSATE [Concomitant]
     Active Substance: DOCUSATE
  2. TORSEMIDE. [Concomitant]
     Active Substance: TORSEMIDE
  3. CALCIUM AND VITAMIN D3 [Concomitant]
     Active Substance: CALCIUM\CHOLECALCIFEROL
  4. LATANOPROST. [Concomitant]
     Active Substance: LATANOPROST
  5. METOPROLOL TARTRATE. [Concomitant]
     Active Substance: METOPROLOL TARTRATE
  6. PROCHLOPERAZINE [Concomitant]
  7. CYCLOSPORINE. [Suspect]
     Active Substance: CYCLOSPORINE
     Indication: ADULT T-CELL LYMPHOMA/LEUKAEMIA RECURRENT
     Route: 048
     Dates: start: 20200615, end: 20201102
  8. KLOR-CON [Concomitant]
     Active Substance: POTASSIUM CHLORIDE
  9. SENNA [Concomitant]
     Active Substance: SENNA LEAF\SENNOSIDES\SENNOSIDES A AND B
  10. CYCLOSPORINE. [Suspect]
     Active Substance: CYCLOSPORINE
     Indication: HTLV-1 TEST POSITIVE
     Route: 048
     Dates: start: 20200615, end: 20201102
  11. WARFARIN [Concomitant]
     Active Substance: WARFARIN

REACTIONS (2)
  - Renal impairment [None]
  - Oedema [None]

NARRATIVE: CASE EVENT DATE: 20201102
